FAERS Safety Report 5454183-5 (Version None)
Quarter: 2007Q3

REPORT INFORMATION
  Report Type: 
  Country: None (occurrence: None)
  Receive Date: 20070917
  Receipt Date: 20070228
  Transmission Date: 20080115
  Serious: No
  Sender: FDA-Public Use
  Company Number: US-ASTRAZENECA-2006UW11113

PATIENT
  Age: 53 Year
  Sex: Female
  Weight: 72.7 kg

DRUGS (5)
  1. SEROQUEL [Suspect]
     Indication: BIPOLAR DISORDER
     Route: 048
     Dates: start: 20010517, end: 20060418
  2. RISPERDAL [Suspect]
  3. ABILIFY [Concomitant]
  4. CLOZARIL [Concomitant]
  5. GEODON [Concomitant]

REACTIONS (2)
  - DIABETES MELLITUS [None]
  - ILL-DEFINED DISORDER [None]
